FAERS Safety Report 5441597-2 (Version None)
Quarter: 2007Q3

REPORT INFORMATION
  Report Type: 
  Country: None (occurrence: None)
  Receive Date: 20070829
  Receipt Date: 20070814
  Transmission Date: 20080115
  Serious: Yes (Hospitalization, Other)
  Sender: FDA-Public Use
  Company Number: SPV1-2007-03935

PATIENT
  Age: 36 Year
  Sex: Male

DRUGS (1)
  1. PENTASA [Suspect]
     Indication: CROHN'S DISEASE
     Dosage: 3 G DAILY, ORAL
     Route: 048
     Dates: start: 20070509, end: 20070101

REACTIONS (1)
  - MYOSITIS [None]
